FAERS Safety Report 16581768 (Version 1)
Quarter: 2019Q3

REPORT INFORMATION
  Report Type: Spontaneous
  Country: US (occurrence: US)
  Receive Date: 20190716
  Receipt Date: 20190716
  Transmission Date: 20191004
  Serious: No
  Sender: FDA-Public Use
  Company Number: US-PERRIGO-18US009388

PATIENT
  Age: 25 Year
  Sex: Female
  Weight: 72.56 kg

DRUGS (1)
  1. MICONAZOLE 1 [Suspect]
     Active Substance: MICONAZOLE NITRATE
     Indication: VULVOVAGINAL MYCOTIC INFECTION
     Dosage: 1200 MG, SINGLE
     Route: 067
     Dates: start: 20180908, end: 20180908

REACTIONS (3)
  - Vulvovaginal discomfort [Recovered/Resolved]
  - Vulvovaginal pruritus [Recovered/Resolved]
  - Vulvovaginal burning sensation [Recovered/Resolved]

NARRATIVE: CASE EVENT DATE: 20180908
